FAERS Safety Report 4873656-7 (Version None)
Quarter: 2006Q1

REPORT INFORMATION
  Report Type: 
  Country: None (occurrence: None)
  Receive Date: 20060103
  Receipt Date: 20060103
  Transmission Date: 20060701
  Serious: Yes (Death)
  Sender: FDA-Public Use
  Company Number: None

PATIENT
  Sex: Male
  Weight: 73.0291 kg

DRUGS (5)
  1. MITOMYCIN-C BULK POWDER [Suspect]
     Indication: OESOPHAGEAL ADENOCARCINOMA
     Dosage: 3 MG/M2, D1, D8-IVP
     Route: 042
     Dates: start: 20051027, end: 20051208
  2. IRINOTECAN, 125 MG/M2, PHARMACIA AND UPJOHN COMPANY [Suspect]
     Dosage: 125 MG/M2 , D2, D9, IV
     Route: 042
  3. PROSCAR [Concomitant]
  4. ATROPINE [Concomitant]
  5. DEXAMETHASONE TAB [Concomitant]

REACTIONS (10)
  - BLOOD CREATININE INCREASED [None]
  - DIARRHOEA [None]
  - FEBRILE NEUTROPENIA [None]
  - HYPERBILIRUBINAEMIA [None]
  - MALAISE [None]
  - NAUSEA [None]
  - ORTHOSTATIC HYPOTENSION [None]
  - PERONEAL NERVE PALSY [None]
  - SEPSIS [None]
  - VOMITING [None]
